FAERS Safety Report 15943012 (Version 3)
Quarter: 2019Q1

REPORT INFORMATION
  Report Type: Spontaneous
  Country: US (occurrence: US)
  Receive Date: 20190210
  Receipt Date: 20190305
  Transmission Date: 20190417
  Serious: Yes (Other)
  Sender: FDA-Public Use
  Company Number: US-ASTRAZENECA-2018SF22607

PATIENT
  Sex: Male

DRUGS (14)
  1. ATORVASTATIN [Concomitant]
     Active Substance: ATORVASTATIN
  2. GABAPENTIN. [Concomitant]
     Active Substance: GABAPENTIN
  3. HUMALOG [Concomitant]
     Active Substance: INSULIN LISPRO
  4. PRILOSEC [Suspect]
     Active Substance: OMEPRAZOLE MAGNESIUM
     Route: 048
     Dates: start: 201606, end: 201608
  5. METFORMIN [Concomitant]
     Active Substance: METFORMIN HYDROCHLORIDE
  6. PRAVASTATIN. [Concomitant]
     Active Substance: PRAVASTATIN
  7. IMDUR [Concomitant]
     Active Substance: ISOSORBIDE MONONITRATE
  8. FAMOTIDINE. [Concomitant]
     Active Substance: FAMOTIDINE
  9. LEVEMIR [Concomitant]
     Active Substance: INSULIN DETEMIR
  10. ISOSORB [Concomitant]
  11. ASPIRIN. [Concomitant]
     Active Substance: ASPIRIN
  12. LISINOPRIL. [Concomitant]
     Active Substance: LISINOPRIL
  13. QUETIAPINE. [Concomitant]
     Active Substance: QUETIAPINE
  14. CARVEDILOL. [Concomitant]
     Active Substance: CARVEDILOL

REACTIONS (3)
  - Chronic kidney disease [Unknown]
  - Renal failure [Unknown]
  - Renal injury [Unknown]
